FAERS Safety Report 6720557-5 (Version None)
Quarter: 2010Q2

REPORT INFORMATION
  Report Type: 
  Country: None (occurrence: None)
  Receive Date: 20100511
  Receipt Date: 20100511
  Transmission Date: 20101027
  Serious: Yes (Other)
  Sender: FDA-Public Use
  Company Number: None

PATIENT
  Age: 49 Year
  Sex: Female
  Weight: 90.7194 kg

DRUGS (1)
  1. FLOVENT HFA [Suspect]
     Indication: ASTHMA
     Dosage: 2 PUFFS BID INHALED
     Dates: start: 20090101, end: 20100101

REACTIONS (3)
  - ASTHMA [None]
  - DEVICE FAILURE [None]
  - PRODUCT MEASURED POTENCY ISSUE [None]
